FAERS Safety Report 9083843 (Version 3)
Quarter: 2014Q4

REPORT INFORMATION
  Report Type: Report from Study
  Country: CA (occurrence: CA)
  Receive Date: 20130218
  Receipt Date: 20141205
  Transmission Date: 20150529
  Serious: Yes (Other)
  Sender: FDA-Public Use
  Company Number: PHHY2012CA113951

PATIENT
  Sex: Female

DRUGS (2)
  1. SANDOSTATIN LAR DEPOT [Suspect]
     Active Substance: OCTREOTIDE ACETATE
     Indication: NEUROENDOCRINE TUMOUR
     Dosage: 30 MG, QMO
     Route: 030
     Dates: start: 20130219
  2. SANDOSTATIN [Suspect]
     Active Substance: OCTREOTIDE ACETATE
     Indication: NEUROENDOCRINE TUMOUR
     Dosage: 100 UG, TEST DOSE
     Route: 058
     Dates: start: 20121130

REACTIONS (8)
  - Hepatic neoplasm [Unknown]
  - Flushing [Unknown]
  - Diarrhoea [Unknown]
  - Abdominal distension [Unknown]
  - Hepatic lesion [Unknown]
  - Dysphonia [Unknown]
  - Abdominal discomfort [Unknown]
  - Rash macular [Unknown]

NARRATIVE: CASE EVENT DATE: 2014
